FAERS Safety Report 16156307 (Version 1)
Quarter: 2019Q2

REPORT INFORMATION
  Report Type: Spontaneous
  Country: US (occurrence: US)
  Receive Date: 20190404
  Receipt Date: 20190404
  Transmission Date: 20190711
  Serious: No
  Sender: FDA-Public Use
  Company Number: US-009507513-1903USA004020

PATIENT
  Age: 83 Year
  Sex: Female

DRUGS (4)
  1. TRAMADOL HYDROCHLORIDE. [Concomitant]
     Active Substance: TRAMADOL HYDROCHLORIDE
  2. MELOXICAM. [Concomitant]
     Active Substance: MELOXICAM
  3. LYRICA [Concomitant]
     Active Substance: PREGABALIN
  4. BELSOMRA [Suspect]
     Active Substance: SUVOREXANT
     Indication: INSOMNIA
     Dosage: L X 10 MG TABLET NIGHTLY
     Route: 048
     Dates: start: 20190228

REACTIONS (3)
  - Hallucination, auditory [Not Recovered/Not Resolved]
  - Drug ineffective [Not Recovered/Not Resolved]
  - Nightmare [Not Recovered/Not Resolved]

NARRATIVE: CASE EVENT DATE: 20190228
